FAERS Safety Report 16631685 (Version 1)
Quarter: 2019Q3

REPORT INFORMATION
  Report Type: Spontaneous
  Country: US (occurrence: US)
  Receive Date: 20190725
  Receipt Date: 20190725
  Transmission Date: 20191004
  Serious: No
  Sender: FDA-Public Use
  Company Number: US-ABBVIE-18S-163-2505957-00

PATIENT
  Age: 66 Year
  Sex: Female

DRUGS (3)
  1. TIROSINT [Suspect]
     Active Substance: LEVOTHYROXINE SODIUM
     Indication: THYROIDECTOMY
     Dosage: MANUFACTURER: MIST
     Route: 048
     Dates: start: 2014
  2. TIROSINT [Suspect]
     Active Substance: LEVOTHYROXINE SODIUM
     Dosage: MANUFACTURER: MIST
     Route: 048
     Dates: start: 2018
  3. TIROSINT [Suspect]
     Active Substance: LEVOTHYROXINE SODIUM
     Dosage: MANUFACTURER MIST
     Route: 048
     Dates: start: 2018

REACTIONS (4)
  - Therapy change [Unknown]
  - Blood thyroid stimulating hormone increased [Unknown]
  - Nail disorder [Recovering/Resolving]
  - Alopecia [Unknown]
